FAERS Safety Report 6818366-1 (Version None)
Quarter: 2010Q3

REPORT INFORMATION
  Report Type: 
  Country: None (occurrence: None)
  Receive Date: 20100706
  Receipt Date: 20080205
  Transmission Date: 20110219
  Serious: Yes (Other)
  Sender: FDA-Public Use
  Company Number: US-PFIZER INC-2008011578

PATIENT
  Sex: Male
  Weight: 50.3 kg

DRUGS (4)
  1. ZITHROMAX [Suspect]
     Indication: EAR INFECTION
     Route: 048
     Dates: start: 20080121, end: 20080125
  2. DEPAKOTE [Suspect]
     Indication: EPILEPSY
     Route: 048
  3. CARBAMAZEPINE [Suspect]
     Indication: EPILEPSY
     Route: 048
  4. STRATTERA [Concomitant]
     Route: 048

REACTIONS (5)
  - ANTICONVULSANT DRUG LEVEL [None]
  - ANTICONVULSANT DRUG LEVEL BELOW THERAPEUTIC [None]
  - CONVULSION [None]
  - LYMPHADENOPATHY [None]
  - PAROTITIS [None]
